FAERS Safety Report 18823056 (Version 3)
Quarter: 2021Q4

REPORT INFORMATION
  Report Type: Spontaneous
  Country: US (occurrence: US)
  Receive Date: 20210202
  Receipt Date: 20211015
  Transmission Date: 20220303
  Serious: Yes (Hospitalization)
  Sender: FDA-Public Use
  Company Number: US-AMNEAL PHARMACEUTICALS-2021-AMRX-00192

PATIENT
  Age: 5 Year
  Sex: Female
  Weight: 21 kg

DRUGS (4)
  1. VIGABATRIN [Suspect]
     Active Substance: VIGABATRIN
     Indication: Infantile spasms
     Dosage: 1250 MILLIGRAM, 2 /DAY
     Route: 048
     Dates: start: 202002
  2. VIGABATRIN [Suspect]
     Active Substance: VIGABATRIN
     Dosage: 1250 MILLIGRAM, 2 /DAY
     Route: 048
     Dates: start: 202002
  3. VIGABATRIN [Suspect]
     Active Substance: VIGABATRIN
     Dosage: 1250 MILLIGRAM, 2 /DAY
     Route: 048
     Dates: start: 202002
  4. VIGABATRIN [Suspect]
     Active Substance: VIGABATRIN
     Dosage: UNK
     Route: 048

REACTIONS (2)
  - Lung disorder [Not Recovered/Not Resolved]
  - Adverse event [Unknown]

NARRATIVE: CASE EVENT DATE: 20210525
